FAERS Safety Report 7360194-5 (Version None)
Quarter: 2011Q1

REPORT INFORMATION
  Report Type: 
  Country: None (occurrence: None)
  Receive Date: 20110307
  Receipt Date: 20110223
  Transmission Date: 20110831
  Serious: Yes (Life-Threatening, Hospitalization)
  Sender: FDA-Public Use
  Company Number: 027995

PATIENT
  Age: 78 Year
  Sex: Female

DRUGS (5)
  1. SIMVASTATIN [Concomitant]
  2. FERROUS FUMARATE [Concomitant]
  3. DIPYRIDAMOLE [Concomitant]
  4. LEVETIRACETAM [Suspect]
     Indication: CONVULSION
     Dosage: 250 MG BID ORAL
     Route: 048
     Dates: start: 20101101, end: 20110103
  5. ASPIRIN [Concomitant]

REACTIONS (3)
  - CHEST PAIN [None]
  - FALL [None]
  - APLASTIC ANAEMIA [None]
